FAERS Safety Report 23655303 (Version 1)
Quarter: 2024Q1

REPORT INFORMATION
  Report Type: Spontaneous
  Country: AU (occurrence: AU)
  Receive Date: 20240320
  Receipt Date: 20240320
  Transmission Date: 20240409
  Serious: Yes (Hospitalization, Other)
  Sender: FDA-Public Use
  Company Number: AU-009507513-2403AUS002803

PATIENT
  Age: 67 Year
  Sex: Male

DRUGS (9)
  1. POSACONAZOLE [Suspect]
     Active Substance: POSACONAZOLE
     Indication: Antifungal prophylaxis
     Dosage: 300 MILLIGRAM
     Route: 048
     Dates: start: 202301
  2. BUDESONIDE [Interacting]
     Active Substance: BUDESONIDE
     Indication: Graft versus host disease
     Dosage: 3 MILLIGRAM, TID
     Dates: start: 202301
  3. BUDESONIDE [Interacting]
     Active Substance: BUDESONIDE
     Dosage: TAPERED AND CEASED OVER 10 DAYS
     Dates: start: 202305
  4. METHYLPREDNISOLONE [Concomitant]
     Active Substance: METHYLPREDNISOLONE
     Indication: Graft versus host disease
     Dosage: 2 MILLIGRAM/KILOGRAM
     Dates: start: 202301
  5. METHYLPREDNISOLONE [Concomitant]
     Active Substance: METHYLPREDNISOLONE
     Dosage: 1-1.25 MILLIGRAM/KILOGRAM
     Dates: start: 202301
  6. CYCLOSPORINE [Concomitant]
     Active Substance: CYCLOSPORINE
     Indication: Graft versus host disease
     Dosage: 200 MILLIGRAM, BID
     Dates: start: 202301, end: 202303
  7. PREDNISOLONE [Concomitant]
     Active Substance: PREDNISOLONE
     Indication: Graft versus host disease
     Dosage: UNK
     Route: 048
     Dates: start: 202301
  8. PREDNISOLONE [Concomitant]
     Active Substance: PREDNISOLONE
     Dosage: TAPERED EACH WEEK OVER 6 WEEKS FROM THE START OF FEBRUARY 2023 AS FOLLOW: AS FOLLOWS: 100, 75, 50, 2
     Dates: start: 202302, end: 202303
  9. VALGANCICLOVIR [Concomitant]
     Active Substance: VALGANCICLOVIR

REACTIONS (3)
  - Cushing^s syndrome [Recovered/Resolved]
  - Tertiary adrenal insufficiency [Recovered/Resolved]
  - Drug interaction [Recovered/Resolved]

NARRATIVE: CASE EVENT DATE: 20230101
